FAERS Safety Report 7435296-5 (Version None)
Quarter: 2011Q2

REPORT INFORMATION
  Report Type: 
  Country: None (occurrence: None)
  Receive Date: 20110425
  Receipt Date: 20110420
  Transmission Date: 20111010
  Serious: Yes (Hospitalization)
  Sender: FDA-Public Use
  Company Number: US-B.I. PHARMACEUTICALS,INC./RIDGEFIELD-2010-BP-13679BP

PATIENT
  Sex: Male

DRUGS (4)
  1. PRADAXA [Suspect]
     Indication: ATRIAL FIBRILLATION
     Dosage: 300 MG
     Route: 048
     Dates: start: 20101126, end: 20101129
  2. PRADAXA [Suspect]
     Dosage: 300 MG
     Route: 048
     Dates: start: 20101130, end: 20110117
  3. DIGOXIN [Concomitant]
     Indication: ATRIAL FIBRILLATION
  4. ZEBETA [Concomitant]
     Indication: ATRIAL FIBRILLATION

REACTIONS (7)
  - HEART RATE INCREASED [None]
  - OROPHARYNGEAL SPASM [None]
  - DIARRHOEA [None]
  - HEADACHE [None]
  - DYSPEPSIA [None]
  - MUSCULOSKELETAL STIFFNESS [None]
  - CHOKING SENSATION [None]
